FAERS Safety Report 6443627-8 (Version None)
Quarter: 2009Q4

REPORT INFORMATION
  Report Type: 
  Country: None (occurrence: None)
  Receive Date: 20091117
  Receipt Date: 20091113
  Transmission Date: 20100525
  Serious: Yes (Death)
  Sender: FDA-Public Use
  Company Number: JP-JNJFOC-20090707584

PATIENT
  Sex: Male

DRUGS (9)
  1. ITRIZOLE [Suspect]
     Route: 041
  2. ITRIZOLE [Suspect]
     Indication: FEBRILE NEUTROPENIA
     Route: 041
  3. FINIBAX [Suspect]
     Indication: DRUG USE FOR UNKNOWN INDICATION
     Route: 042
  4. MIRACLID [Suspect]
     Indication: DRUG USE FOR UNKNOWN INDICATION
     Route: 042
  5. NOVOLIN R [Concomitant]
     Route: 030
  6. GLYCEREB [Concomitant]
     Route: 042
  7. DEXAMETHASONE SODIUM PHOSPHATE [Concomitant]
     Route: 042
  8. SOLU-MEDROL [Concomitant]
     Route: 030
  9. NOVOLIN R [Concomitant]
     Route: 030

REACTIONS (7)
  - ASPARTATE AMINOTRANSFERASE INCREASED [None]
  - BLOOD ALKALINE PHOSPHATASE INCREASED [None]
  - BLOOD POTASSIUM INCREASED [None]
  - METASTASES TO BONE MARROW [None]
  - METASTASES TO CENTRAL NERVOUS SYSTEM [None]
  - RESPIRATORY FAILURE [None]
  - SMALL CELL LUNG CANCER STAGE UNSPECIFIED [None]
